FAERS Safety Report 7680960-6 (Version None)
Quarter: 2011Q3

REPORT INFORMATION
  Report Type: 
  Country: None (occurrence: None)
  Receive Date: 20110812
  Receipt Date: 20110729
  Transmission Date: 20111222
  Serious: Yes (Hospitalization)
  Sender: FDA-Public Use
  Company Number: IT-BAYER-2011-066820

PATIENT
  Age: 80 Year
  Sex: Female

DRUGS (3)
  1. ASPIRIN [Suspect]
     Indication: CORONARY ARTERIAL STENT INSERTION
     Dosage: 100 MG, QD
     Route: 048
     Dates: start: 20101001, end: 20110207
  2. PLAVIX [Suspect]
     Indication: CORONARY ARTERIAL STENT INSERTION
     Dosage: DAILY DOSE 75 MG
     Route: 048
     Dates: start: 20101001
  3. TIENAM [Suspect]
     Indication: ESCHERICHIA SEPSIS
     Dosage: DAILY DOSE 2000 MG
     Route: 042
     Dates: start: 20110128, end: 20110202

REACTIONS (2)
  - GASTROINTESTINAL HAEMORRHAGE [None]
  - CLOSTRIDIUM DIFFICILE COLITIS [None]
